FAERS Safety Report 16858801 (Version 10)
Quarter: 2021Q3

REPORT INFORMATION
  Report Type: Spontaneous
  Country: DE (occurrence: DE)
  Receive Date: 20190926
  Receipt Date: 20210813
  Transmission Date: 20211014
  Serious: Yes (Other)
  Sender: FDA-Public Use
  Company Number: PHHY2019DE220901

PATIENT
  Age: 77 Year
  Sex: Female
  Weight: 77 kg

DRUGS (10)
  1. VARGATEF [Suspect]
     Active Substance: NINTEDANIB
     Indication: LUNG ADENOCARCINOMA
     Dosage: 400 MG, QD
     Route: 048
     Dates: start: 20190705
  2. VARGATEF [Suspect]
     Active Substance: NINTEDANIB
     Dosage: 400 MG, QD
     Route: 048
     Dates: start: 20200311
  3. VARGATEF [Suspect]
     Active Substance: NINTEDANIB
     Dosage: 150 MG, 0.5 DAY
     Route: 048
     Dates: start: 20200327
  4. DOCETAXEL. [Suspect]
     Active Substance: DOCETAXEL
     Indication: LUNG ADENOCARCINOMA
     Dosage: 75 MG/M2, QD (FORMULATION: LIQUID; TOTAL DAILY DOSE AT ONSET (DOSE, UNIT): 75MG/M2 BSA)
     Route: 042
     Dates: start: 20190704
  5. VARGATEF [Suspect]
     Active Substance: NINTEDANIB
     Dosage: 200 MG,QD
     Route: 048
     Dates: start: 20190705, end: 20210111
  6. VARGATEF [Suspect]
     Active Substance: NINTEDANIB
     Dosage: 300 MG, QD
     Route: 048
     Dates: start: 20200327
  7. VARGATEF [Suspect]
     Active Substance: NINTEDANIB
     Dosage: 300 MG, QD
     Route: 048
  8. VARGATEF [Suspect]
     Active Substance: NINTEDANIB
     Dosage: 150 MG, 0.5 DAY
     Route: 065
  9. VARGATEF [Suspect]
     Active Substance: NINTEDANIB
     Dosage: 200 MG, 0.5 DAY
     Route: 048
     Dates: start: 20200311
  10. VARGATEF [Suspect]
     Active Substance: NINTEDANIB
     Dosage: 200 MG,  0.5 DAY
     Route: 065

REACTIONS (14)
  - Nausea [Recovered/Resolved]
  - Dermatitis exfoliative generalised [Recovered/Resolved]
  - Nausea [Recovered/Resolved]
  - Face oedema [Recovered/Resolved]
  - Vomiting [Recovered/Resolved]
  - Nausea [Recovered/Resolved]
  - Nausea [Recovered/Resolved]
  - Vomiting [Recovered/Resolved]
  - Hypertension [Recovered/Resolved]
  - Nausea [Recovered/Resolved]
  - Nausea [Recovered/Resolved]
  - Diarrhoea [Recovered/Resolved]
  - Diarrhoea [Recovered/Resolved]
  - Nausea [Recovered/Resolved]

NARRATIVE: CASE EVENT DATE: 20190704
